FAERS Safety Report 6252027-5 (Version None)
Quarter: 2009Q2

REPORT INFORMATION
  Report Type: 
  Country: None (occurrence: None)
  Receive Date: 20090630
  Receipt Date: 20070410
  Transmission Date: 20091009
  Serious: Yes (Hospitalization)
  Sender: FDA-Public Use
  Company Number: US-ROCHE-638671

PATIENT
  Sex: Male

DRUGS (11)
  1. ENFUVIRTIDE [Suspect]
     Indication: HIV INFECTION
     Route: 065
     Dates: start: 20040811, end: 20080814
  2. NORVIR [Concomitant]
     Dates: start: 20040811
  3. NORVIR [Concomitant]
     Dosage: FREQ: QD
     Dates: start: 20050208, end: 20050329
  4. NORVIR [Concomitant]
     Dates: end: 20080814
  5. RESCRIPTOR [Concomitant]
     Dates: start: 20040811, end: 20070606
  6. VIREAD [Concomitant]
     Dosage: FREQ: QD
     Dates: start: 20050616, end: 20080814
  7. APTIVUS [Concomitant]
     Dosage: FREQ: QD
     Dates: start: 20050802, end: 20080101
  8. TRUVADA [Concomitant]
     Dates: start: 20051027, end: 20080101
  9. PREZISTA [Concomitant]
     Dosage: FREQ: QD
     Dates: start: 20061004, end: 20080814
  10. ACYCLOVIR [Concomitant]
     Dates: start: 20031113, end: 20070101
  11. SEPTRA [Concomitant]
     Dosage: FREQ: QD
     Dates: start: 20040325, end: 20070101

REACTIONS (1)
  - CERVICAL SPINAL STENOSIS [None]
